FAERS Safety Report 25120489 (Version 2)
Quarter: 2025Q3

REPORT INFORMATION
  Report Type: Spontaneous
  Country: JP (occurrence: JP)
  Receive Date: 20250325
  Receipt Date: 20250702
  Transmission Date: 20251021
  Serious: Yes (Hospitalization, Other)
  Sender: GILEAD
  Company Number: JP-JNJFOC-20250368450

PATIENT
  Age: 71 Year
  Sex: Male

DRUGS (1)
  1. ODEFSEY [Suspect]
     Active Substance: EMTRICITABINE\RILPIVIRINE HYDROCHLORIDE\TENOFOVIR ALAFENAMIDE FUMARATE
     Indication: HIV infection
     Dosage: 1 DOSAGE FORM, QD
     Route: 048

REACTIONS (2)
  - Subdural haematoma [Recovering/Resolving]
  - Rehabilitation therapy [Unknown]

NARRATIVE: CASE EVENT DATE: 20250101
